FAERS Safety Report 15901918 (Version 1)
Quarter: 2019Q1

REPORT INFORMATION
  Report Type: Spontaneous
  Country: KR (occurrence: KR)
  Receive Date: 20190201
  Receipt Date: 20190201
  Transmission Date: 20190417
  Serious: Yes (Death, Hospitalization)
  Sender: FDA-Public Use
  Company Number: KR-MYLANLABS-2019M1008773

PATIENT
  Age: 9 Year
  Sex: Male

DRUGS (4)
  1. TACROLIMUS. [Suspect]
     Active Substance: TACROLIMUS
     Indication: IMMUNOSUPPRESSANT DRUG THERAPY
     Dosage: TACROLIMUS WAS CONTINUED WITH BLOOD LEVEL MAINTAINED AT 10 NG/ML
     Route: 065
  2. PREDNISOLONE. [Suspect]
     Active Substance: PREDNISOLONE
     Indication: IMMUNOSUPPRESSANT DRUG THERAPY
     Dosage: INITIAL DOSE NOT STATED
     Route: 065
  3. PREDNISOLONE. [Suspect]
     Active Substance: PREDNISOLONE
     Dosage: 2.5 MILLIGRAM
     Route: 065
  4. MYCOPHENOLATE MOFETIL. [Suspect]
     Active Substance: MYCOPHENOLATE MOFETIL
     Indication: IMMUNOSUPPRESSANT DRUG THERAPY
     Route: 065

REACTIONS (9)
  - Cytomegalovirus infection [Fatal]
  - JC virus infection [Fatal]
  - Cystitis haemorrhagic [Fatal]
  - Pneumocystis jirovecii pneumonia [Fatal]
  - Generalised tonic-clonic seizure [Fatal]
  - Adenovirus infection [Fatal]
  - Meningitis viral [Fatal]
  - Tubulointerstitial nephritis [Fatal]
  - Bone marrow failure [Fatal]
